FAERS Safety Report 15344630 (Version 1)
Quarter: 2018Q3

REPORT INFORMATION
  Report Type: Spontaneous
  Country: US (occurrence: US)
  Receive Date: 20180903
  Receipt Date: 20180903
  Transmission Date: 20181010
  Serious: Yes (Death, Life-Threatening, Hospitalization, Other)
  Sender: FDA-Public Use
  Company Number: US-ASTRAZENECA-2018SF09597

PATIENT
  Age: 22463 Day
  Sex: Female
  Weight: 59 kg

DRUGS (1)
  1. TAGRISSO [Suspect]
     Active Substance: OSIMERTINIB
     Indication: NON-SMALL CELL LUNG CANCER STAGE IV
     Route: 048
     Dates: start: 201803, end: 20180717

REACTIONS (15)
  - Cardiac arrest [Unknown]
  - Death [Fatal]
  - Hypotension [Unknown]
  - Head discomfort [Unknown]
  - Neck pain [Unknown]
  - Thrombosis [Not Recovered/Not Resolved]
  - Headache [Unknown]
  - Back pain [Unknown]
  - Fatigue [Unknown]
  - Haemoptysis [Unknown]
  - Pneumonia [Not Recovered/Not Resolved]
  - Multiple organ dysfunction syndrome [Unknown]
  - Dyspnoea [Unknown]
  - Ocular discomfort [Unknown]
  - Therapy cessation [Unknown]

NARRATIVE: CASE EVENT DATE: 201803
